FAERS Safety Report 16850182 (Version 1)
Quarter: 2019Q4

REPORT INFORMATION
  Report Type: Spontaneous
  Country: US (occurrence: US)
  Receive Date: 20190906
  Receipt Date: 20190906
  Transmission Date: 20200122
  Serious: Yes (Death)
  Sender: FDA-Public Use
  Company Number: None

PATIENT
  Age: 67 Year
  Sex: Female
  Weight: 60.75 kg

DRUGS (3)
  1. PROFESSIONAL WEIGHT SUPPORT (HOMEOPATHIC) [Suspect]
     Active Substance: HOMEOPATHICS
  2. MATRIX SUPPORT (HOMEOPATHIC) [Suspect]
     Active Substance: HOMEOPATHICS
     Indication: WEIGHT CONTROL
     Dosage: ?          QUANTITY:1 OUNCE(S);?
     Route: 060
     Dates: start: 20180118, end: 20180222
  3. MATRIX SUPPORT (HOMEOPATHIC) [Suspect]
     Active Substance: HOMEOPATHICS
     Indication: DIABETES MELLITUS MANAGEMENT
     Dosage: ?          QUANTITY:1 OUNCE(S);?
     Route: 060
     Dates: start: 20180118, end: 20180222

REACTIONS (2)
  - Product use in unapproved indication [None]
  - Myocardial infarction [None]

NARRATIVE: CASE EVENT DATE: 20180322
